FAERS Safety Report 18484992 (Version 3)
Quarter: 2021Q4

REPORT INFORMATION
  Report Type: Report from Study
  Country: US (occurrence: US)
  Receive Date: 20201110
  Receipt Date: 20211109
  Transmission Date: 20220304
  Serious: Yes (Hospitalization, Other)
  Sender: FDA-Public Use
  Company Number: US-NOVARTISTESTPH-NVSC2020US290830

PATIENT
  Sex: Female

DRUGS (2)
  1. MAYZENT [Suspect]
     Active Substance: SIPONIMOD
     Indication: Secondary progressive multiple sclerosis
     Dosage: 2 MG, QD
     Route: 048
  2. MAYZENT [Suspect]
     Active Substance: SIPONIMOD
     Indication: Multiple sclerosis
     Route: 048

REACTIONS (6)
  - Haematemesis [Unknown]
  - Multiple sclerosis relapse [Unknown]
  - Muscle fatigue [Unknown]
  - Mobility decreased [Unknown]
  - Fatigue [Unknown]
  - Blood pressure increased [Unknown]
